FAERS Safety Report 14448142 (Version 1)
Quarter: 2018Q1

REPORT INFORMATION
  Report Type: Report from Study
  Country: US (occurrence: US)
  Receive Date: 20180126
  Receipt Date: 20180126
  Transmission Date: 20180509
  Serious: Yes (Hospitalization)
  Sender: FDA-Public Use
  Company Number: US-VIFOR (INTERNATIONAL) INC.-VIT-2018-00670

PATIENT
  Age: 69 Year
  Sex: Female

DRUGS (32)
  1. METOPROLOL TARTRATE. [Concomitant]
     Active Substance: METOPROLOL TARTRATE
     Dates: start: 20170327
  2. COLECALCIFEROL [Concomitant]
     Active Substance: CHOLECALCIFEROL
  3. ALENDRONATE [Concomitant]
     Active Substance: ALENDRONATE SODIUM
     Dates: start: 20170327
  4. FENTANYL. [Concomitant]
     Active Substance: FENTANYL
     Dates: start: 20170327
  5. OXYCODONE [Concomitant]
     Active Substance: OXYCODONE
     Dates: start: 20170327
  6. BENAZEPRIL HYDROCHLORIDE~~AMLODIPINE BESILATE [Concomitant]
     Dosage: 2.5-10 MILLIGRAM
     Dates: start: 20170327
  7. ALBUTEROL. [Concomitant]
     Active Substance: ALBUTEROL
     Dates: start: 20170327
  8. FLUTICASONE. [Concomitant]
     Active Substance: FLUTICASONE
     Dates: start: 20170327
  9. IRON [Concomitant]
     Active Substance: IRON
     Dates: start: 20170327
  10. MAGNESIUM [Concomitant]
     Active Substance: MAGNESIUM
     Dates: start: 20170327
  11. OMEPRAZOLE. [Concomitant]
     Active Substance: OMEPRAZOLE
     Dates: start: 20170327
  12. DOCUSATE SODIUM. [Concomitant]
     Active Substance: DOCUSATE SODIUM
     Dates: start: 20170327
  13. FOLIC ACID. [Concomitant]
     Active Substance: FOLIC ACID
     Dates: start: 20170327
  14. LORATADINE. [Concomitant]
     Active Substance: LORATADINE
     Dates: start: 20170327
  15. NARATRIPTAN [Concomitant]
     Active Substance: NARATRIPTAN HYDROCHLORIDE
     Dates: start: 20170327
  16. PROMETHAZINE [Concomitant]
     Active Substance: PROMETHAZINE\PROMETHAZINE HYDROCHLORIDE
     Dates: start: 20170327
  17. RANITIDINE. [Concomitant]
     Active Substance: RANITIDINE
     Dates: start: 20170327
  18. TRAZODONE [Concomitant]
     Active Substance: TRAZODONE HYDROCHLORIDE
     Dates: start: 20170327
  19. FOLIC ACID~~CYANOCOBALAMIN [Concomitant]
     Dates: start: 20170327
  20. PROAIR HFA [Concomitant]
     Active Substance: ALBUTEROL SULFATE
     Dates: start: 20170327
  21. SUCRALFATE. [Concomitant]
     Active Substance: SUCRALFATE
     Dates: start: 20170327
  22. TRIAMCINOLONE [Concomitant]
     Active Substance: TRIAMCINOLONE
     Dates: start: 20170327
  23. ACETYLSALICYLIC ACID [Concomitant]
     Active Substance: ASPIRIN
     Dates: start: 20170327
  24. CALCIUM GLUCONATE. [Concomitant]
     Active Substance: CALCIUM GLUCONATE
     Dates: start: 20170327
  25. GABAPENTIN. [Concomitant]
     Active Substance: GABAPENTIN
     Dates: start: 20170327
  26. HYDROXYZINE PAM [Concomitant]
     Active Substance: HYDROXYZINE PAMOATE
     Dates: start: 20170327
  27. VELTASSA [Suspect]
     Active Substance: PATIROMER
     Indication: HYPERKALAEMIA
     Route: 048
     Dates: start: 20170602
  28. VITAMINS NOS [Concomitant]
     Active Substance: VITAMINS
     Dates: start: 20170327
  29. TROKENDI [Concomitant]
     Active Substance: TOPIRAMATE
     Dates: start: 20170327
  30. MIDODRINE [Concomitant]
     Active Substance: MIDODRINE
     Dates: start: 20170531
  31. NORTRIPTYLINE [Concomitant]
     Active Substance: NORTRIPTYLINE
     Dates: start: 20170327
  32. ZOLPIDEM [Concomitant]
     Active Substance: ZOLPIDEM\ZOLPIDEM TARTRATE
     Dates: start: 20170327

REACTIONS (3)
  - Constipation [Not Recovered/Not Resolved]
  - Influenza [Not Recovered/Not Resolved]
  - Hospitalisation [Not Recovered/Not Resolved]

NARRATIVE: CASE EVENT DATE: 20171225
